FAERS Safety Report 25595987 (Version 1)
Quarter: 2025Q3

REPORT INFORMATION
  Report Type: Report from Study
  Country: US (occurrence: US)
  Receive Date: 20250723
  Receipt Date: 20250723
  Transmission Date: 20251021
  Serious: Yes (Death)
  Sender: MYLAN
  Company Number: US-MYLANLABS-2025M1060718

PATIENT

DRUGS (16)
  1. DEXAMETHASONE [Suspect]
     Active Substance: DEXAMETHASONE
     Indication: Acute lymphocytic leukaemia
  2. DEXAMETHASONE [Suspect]
     Active Substance: DEXAMETHASONE
  3. DEXAMETHASONE [Suspect]
     Active Substance: DEXAMETHASONE
     Route: 065
  4. DEXAMETHASONE [Suspect]
     Active Substance: DEXAMETHASONE
     Route: 065
  5. DEXAMETHASONE [Suspect]
     Active Substance: DEXAMETHASONE
  6. DEXAMETHASONE [Suspect]
     Active Substance: DEXAMETHASONE
  7. DEXAMETHASONE [Suspect]
     Active Substance: DEXAMETHASONE
     Route: 065
  8. DEXAMETHASONE [Suspect]
     Active Substance: DEXAMETHASONE
     Route: 065
  9. VINCRISTINE [Suspect]
     Active Substance: VINCRISTINE
     Indication: Acute lymphocytic leukaemia
  10. VINCRISTINE [Suspect]
     Active Substance: VINCRISTINE
     Route: 042
  11. VINCRISTINE [Suspect]
     Active Substance: VINCRISTINE
     Route: 042
  12. VINCRISTINE [Suspect]
     Active Substance: VINCRISTINE
  13. PEGASPARGASE [Suspect]
     Active Substance: PEGASPARGASE
     Indication: Acute lymphocytic leukaemia
  14. PEGASPARGASE [Suspect]
     Active Substance: PEGASPARGASE
     Route: 042
  15. PEGASPARGASE [Suspect]
     Active Substance: PEGASPARGASE
     Route: 042
  16. PEGASPARGASE [Suspect]
     Active Substance: PEGASPARGASE

REACTIONS (1)
  - Fungal infection [Fatal]
